FAERS Safety Report 16919430 (Version 2)
Quarter: 2019Q4

REPORT INFORMATION
  Report Type: Spontaneous
  Country: GB (occurrence: GB)
  Receive Date: 20191015
  Receipt Date: 20191030
  Transmission Date: 20200122
  Serious: Yes (Other)
  Sender: FDA-Public Use
  Company Number: GB-PFIZER INC-2019442888

PATIENT
  Age: 68 Year
  Sex: Female

DRUGS (1)
  1. PAMIDRONATE DISODIUM. [Suspect]
     Active Substance: PAMIDRONATE DISODIUM
     Indication: OSTEOPOROSIS
     Dosage: UNK
     Route: 042

REACTIONS (3)
  - Off label use [Unknown]
  - Product use in unapproved indication [Unknown]
  - Femur fracture [Recovering/Resolving]
